FAERS Safety Report 17096656 (Version 2)
Quarter: 2019Q4

REPORT INFORMATION
  Report Type: Spontaneous
  Country: DE (occurrence: DE)
  Receive Date: 20191202
  Receipt Date: 20191227
  Transmission Date: 20200122
  Serious: Yes (Other)
  Sender: FDA-Public Use
  Company Number: DE-AMGEN-DEUSP2019198665

PATIENT
  Age: 69 Year
  Sex: Male
  Weight: 93 kg

DRUGS (5)
  1. REPATHA [Suspect]
     Active Substance: EVOLOCUMAB
     Indication: HYPERCHOLESTEROLAEMIA
     Dosage: UNK UNK, Q2WK
     Route: 058
     Dates: end: 201911
  2. ASPIRIN. [Concomitant]
     Active Substance: ASPIRIN
     Indication: TRANSIENT ISCHAEMIC ATTACK
  3. CANDOR [Concomitant]
     Indication: HYPERTENSION
     Dosage: 5 MILLIGRAM (16/12), QD
  4. ASPIRIN. [Concomitant]
     Active Substance: ASPIRIN
     Indication: PERIPHERAL ARTERIAL OCCLUSIVE DISEASE
     Dosage: 100 MILLIGRAM, QD
  5. CANDOR [Concomitant]
     Indication: CORONARY ARTERY DISEASE

REACTIONS (9)
  - Nausea [Not Recovered/Not Resolved]
  - Bowel movement irregularity [Unknown]
  - Cognitive disorder [Unknown]
  - Musculoskeletal pain [Unknown]
  - Diarrhoea [Unknown]
  - Hypoaesthesia [Unknown]
  - Lumbar spinal stenosis [Unknown]
  - Dizziness [Unknown]
  - Muscle spasms [Unknown]
